FAERS Safety Report 8820879 (Version 1)
Quarter: 2012Q4

REPORT INFORMATION
  Report Type: Report from Study
  Country: PL (occurrence: PL)
  Receive Date: 20121002
  Receipt Date: 20121002
  Transmission Date: 20130627
  Serious: Yes (Hospitalization)
  Sender: FDA-Public Use
  Company Number: PL-ROCHE-1137139

PATIENT
  Age: 72 Year
  Sex: Female

DRUGS (8)
  1. MABTHERA [Suspect]
     Indication: B-CELL LYMPHOMA
     Route: 042
     Dates: start: 20080204, end: 20080625
  2. MABTHERA [Suspect]
     Dosage: maintainance dose
     Route: 065
     Dates: start: 20080806, end: 20100621
  3. CYCLOPHOSPHAMIDE [Suspect]
     Indication: B-CELL LYMPHOMA
     Route: 042
     Dates: start: 20080204, end: 20080625
  4. CYCLOPHOSPHAMIDE [Suspect]
     Dosage: maintainance dose
     Route: 065
     Dates: start: 20080826, end: 20100621
  5. VINCRISTINE [Suspect]
     Indication: B-CELL LYMPHOMA
     Route: 042
     Dates: start: 20080204, end: 20080625
  6. VINCRISTINE [Suspect]
     Dosage: maintanance dose
     Route: 065
     Dates: start: 20080826, end: 20100621
  7. PREDNISOLON [Suspect]
     Indication: B-CELL LYMPHOMA
     Route: 048
     Dates: start: 20080204, end: 20080625
  8. PREDNISOLON [Suspect]
     Dosage: maintanance dose
     Route: 065
     Dates: start: 20080826, end: 20100621

REACTIONS (1)
  - Lymphoma [Unknown]
